FAERS Safety Report 4362578-6 (Version None)
Quarter: 2004Q2

REPORT INFORMATION
  Report Type: 
  Country: None (occurrence: None)
  Receive Date: 20040520
  Receipt Date: 20040507
  Transmission Date: 20050107
  Serious: Yes (Other)
  Sender: FDA-Public Use
  Company Number: US-JNJFOC-20040501363

PATIENT
  Age: 68 Year
  Sex: Female
  Weight: 86.1834 kg

DRUGS (12)
  1. INFLIXIMAB (INFLIXIIMAB, RECOMBINANT) LYOPHILIZED POWDER [Suspect]
     Indication: RHEUMATOID ARTHRITIS
     Dosage: INTRAVENOUS
     Route: 042
     Dates: start: 20001127, end: 20001127
  2. INFLIXIMAB (INFLIXIIMAB, RECOMBINANT) LYOPHILIZED POWDER [Suspect]
     Indication: RHEUMATOID ARTHRITIS
     Dosage: INTRAVENOUS
     Route: 042
     Dates: start: 20020301, end: 20020301
  3. NORVASC [Concomitant]
  4. LIPITOR [Concomitant]
  5. MODURETIC 5-50 [Concomitant]
  6. METHYLPREDNISOLONE [Concomitant]
  7. AXID [Concomitant]
  8. CLARINEX [Concomitant]
  9. NEURONTIN [Concomitant]
  10. EVISTA [Concomitant]
  11. CALCIUM (CALCIUM) [Concomitant]
  12. PERCOCET [Concomitant]

REACTIONS (1)
  - SKIN CANCER [None]
